FAERS Safety Report 8540771-6 (Version None)
Quarter: 2012Q3

REPORT INFORMATION
  Report Type: 
  Country: None (occurrence: None)
  Receive Date: 20120726
  Receipt Date: 20120724
  Transmission Date: 20120928
  Serious: Yes (Hospitalization, Other)
  Sender: FDA-Public Use
  Company Number: PHEH2012US014555

PATIENT
  Sex: Female

DRUGS (2)
  1. RITALIN [Suspect]
     Indication: DISTURBANCE IN ATTENTION
     Dosage: UNK UKN, UNK
  2. REBIF [Concomitant]
     Dosage: 1 DF, QW3
     Route: 058
     Dates: start: 20090101

REACTIONS (4)
  - PARANOIA [None]
  - INFLUENZA LIKE ILLNESS [None]
  - DEPRESSION [None]
  - DELUSION [None]
